FAERS Safety Report 12411248 (Version 1)
Quarter: 2016Q2

REPORT INFORMATION
  Report Type: Spontaneous
  Country: US (occurrence: US)
  Receive Date: 20160527
  Receipt Date: 20160527
  Transmission Date: 20160815
  Serious: Yes (Hospitalization, Other)
  Sender: FDA-Public Use
  Company Number: US-009507513-1605USA011663

PATIENT
  Sex: Female

DRUGS (2)
  1. JANUMET [Suspect]
     Active Substance: METFORMIN HYDROCHLORIDE\SITAGLIPTIN PHOSPHATE
     Dosage: UNK
     Route: 048
  2. GLIPIZIDE. [Concomitant]
     Active Substance: GLIPIZIDE

REACTIONS (11)
  - Drug hypersensitivity [Unknown]
  - Nephrolithiasis [Recovered/Resolved]
  - Memory impairment [Recovering/Resolving]
  - Abnormal behaviour [Unknown]
  - Gout [Recovering/Resolving]
  - Limb operation [Unknown]
  - Hallucination [Unknown]
  - Gait disturbance [Unknown]
  - Knee arthroplasty [Unknown]
  - Stress [Unknown]
  - Glycosylated haemoglobin increased [Unknown]
